FAERS Safety Report 22187844 (Version 6)
Quarter: 2023Q2

REPORT INFORMATION
  Report Type: Report from Study
  Country: PA (occurrence: PA)
  Receive Date: 20230408
  Receipt Date: 20230630
  Transmission Date: 20230722
  Serious: Yes (Life-Threatening, Other)
  Sender: FDA-Public Use
  Company Number: PA-002147023-NVSC2022PA160435

PATIENT
  Age: 48 Year
  Sex: Female
  Weight: 45.351 kg

DRUGS (6)
  1. KISQALI [Suspect]
     Active Substance: RIBOCICLIB
     Indication: Breast cancer metastatic
     Dosage: 600 MG, QD
     Route: 048
     Dates: start: 202202
  2. KISQALI [Suspect]
     Active Substance: RIBOCICLIB
     Indication: Metastases to bone
     Dosage: 600 MG, QD
     Route: 048
     Dates: start: 202203
  3. KISQALI [Suspect]
     Active Substance: RIBOCICLIB
     Dosage: 200 MG, QD (3 TABLETS DAILY, FOR 21 DAYS AND THEN REST 7 DAYS)
     Route: 065
     Dates: start: 202203
  4. GABAPENTIN [Suspect]
     Active Substance: GABAPENTIN
     Indication: Breast cancer stage IV
     Dosage: UNK
     Route: 065
  5. GABAPENTIN [Suspect]
     Active Substance: GABAPENTIN
     Indication: Metastases to bone
     Dosage: UNK
     Route: 065
     Dates: start: 202202, end: 202206
  6. ZOLEDRONIC ACID [Suspect]
     Active Substance: ZOLEDRONIC ACID
     Indication: Metastases to bone
     Dosage: UNK
     Route: 065

REACTIONS (14)
  - Decreased immune responsiveness [Not Recovered/Not Resolved]
  - Leukopenia [Unknown]
  - Metastases to bone [Recovering/Resolving]
  - Headache [Recovering/Resolving]
  - Tumour marker abnormal [Recovering/Resolving]
  - Tumour marker decreased [Recovering/Resolving]
  - Lymphocyte count abnormal [Unknown]
  - Red blood cell abnormality [Unknown]
  - Haemoglobin abnormal [Unknown]
  - Mean cell volume abnormal [Unknown]
  - Mean cell haemoglobin [Unknown]
  - Red cell distribution width increased [Unknown]
  - Anaemia [Not Recovered/Not Resolved]
  - Product use in unapproved indication [Unknown]

NARRATIVE: CASE EVENT DATE: 20220128
